FAERS Safety Report 6088179-X (Version None)
Quarter: 2009Q1

REPORT INFORMATION
  Report Type: 
  Country: None (occurrence: None)
  Receive Date: 20090219
  Receipt Date: 20090204
  Transmission Date: 20090719
  Serious: Yes (Hospitalization)
  Sender: FDA-Public Use
  Company Number: 2009S1002070

PATIENT
  Sex: Female

DRUGS (8)
  1. HYDRALAZINE HCL [Suspect]
     Indication: BLOOD PRESSURE ABNORMAL
  2. LABETALOL (LABETALOL) (100 MG) [Suspect]
     Indication: DRUG USE FOR UNKNOWN INDICATION
     Dosage: 100 MG;TWICE A DAY
  3. METHYLDOPA [Suspect]
     Indication: DRUG USE FOR UNKNOWN INDICATION
     Dosage: 250 MG;3 TIMES A DAY; 500 MG;4 TIMES A DAY
  4. NIFEDIPINE [Suspect]
     Indication: BLOOD PRESSURE
  5. ACETYLSALICYLIC ACID [Concomitant]
  6. BETAMETHASONE [Concomitant]
  7. DALTEPARIN SODIUM [Concomitant]
  8. PHOSPHOLIPIDS [Concomitant]

REACTIONS (3)
  - BLOOD PRESSURE INCREASED [None]
  - CAESAREAN SECTION [None]
  - DRUG EXPOSURE DURING PREGNANCY [None]
